FAERS Safety Report 17049609 (Version 7)
Quarter: 2020Q3

REPORT INFORMATION
  Report Type: Spontaneous
  Country: CN (occurrence: CN)
  Receive Date: 20191119
  Receipt Date: 20191224
  Transmission Date: 20201104
  Serious: Yes (Hospitalization)
  Sender: FDA-Public Use
  Company Number: CN-CELGENEUS-CHN-20191104769

PATIENT
  Age: 67 Year
  Sex: Male
  Weight: 58 kg

DRUGS (36)
  1. CARBOPLATIN. [Suspect]
     Active Substance: CARBOPLATIN
     Indication: NON-SMALL CELL LUNG CANCER
     Dosage: AUC 5
     Route: 041
     Dates: start: 20191017, end: 20191017
  2. RECOMBINANT HUMAN GRANULOCYTE STIMULATING FACTOR [Concomitant]
     Route: 058
     Dates: start: 20191112, end: 20191112
  3. SODIUM CHLORIDE. [Concomitant]
     Active Substance: SODIUM CHLORIDE
     Route: 041
     Dates: start: 20191024
  4. SODIUM CHLORIDE. [Concomitant]
     Active Substance: SODIUM CHLORIDE
     Route: 041
     Dates: start: 20191101
  5. CARBOPLATIN. [Suspect]
     Active Substance: CARBOPLATIN
     Route: 041
     Dates: start: 20191115
  6. RECOMBINANT HUMAN GRANULOCYTE STIMULATING FACTOR [Concomitant]
     Indication: PRODUCT USED FOR UNKNOWN INDICATION
     Route: 058
     Dates: start: 20191106, end: 20191106
  7. SODIUM CHLORIDE. [Concomitant]
     Active Substance: SODIUM CHLORIDE
     Route: 041
     Dates: start: 20191101
  8. SODIUM CHLORIDE. [Concomitant]
     Active Substance: SODIUM CHLORIDE
     Route: 041
     Dates: start: 20191101
  9. ABRAXANE [Suspect]
     Active Substance: PACLITAXEL
     Dosage: ADD INTO THE 250 ML OF SALT WATER
     Route: 041
     Dates: start: 20191024
  10. SODIUM CHLORIDE. [Concomitant]
     Active Substance: SODIUM CHLORIDE
     Route: 041
     Dates: start: 20191024
  11. SODIUM CHLORIDE. [Concomitant]
     Active Substance: SODIUM CHLORIDE
     Route: 041
     Dates: start: 20191102
  12. DIACETYLACETIC ACID ETHYLENEDIAMINE [Concomitant]
     Route: 065
     Dates: start: 20191102
  13. SODIUM CHLORIDE. [Concomitant]
     Active Substance: SODIUM CHLORIDE
     Route: 041
     Dates: start: 20191024
  14. SODIUM CHLORIDE. [Concomitant]
     Active Substance: SODIUM CHLORIDE
     Route: 041
     Dates: start: 20191102
  15. WEIDI [Concomitant]
     Route: 065
     Dates: start: 20191101
  16. DIACETYLACETIC ACID ETHYLENEDIAMINE [Concomitant]
     Route: 065
     Dates: start: 20191031
  17. RECOMBINANT HUMAN GRANULOCYTE STIMULATING FACTOR [Concomitant]
     Route: 058
     Dates: start: 20191031, end: 20191031
  18. RECOMBINANT HUMAN GRANULOCYTE STIMULATING FACTOR [Concomitant]
     Route: 058
     Dates: start: 20191111, end: 20191111
  19. SODIUM CHLORIDE. [Concomitant]
     Active Substance: SODIUM CHLORIDE
     Indication: PRODUCT USED FOR UNKNOWN INDICATION
     Route: 041
     Dates: start: 20191024
  20. SODIUM CHLORIDE. [Concomitant]
     Active Substance: SODIUM CHLORIDE
     Route: 041
     Dates: start: 20191101
  21. WEIDI [Concomitant]
     Route: 065
     Dates: start: 20191102
  22. SAI GE EN [Concomitant]
     Route: 065
     Dates: start: 20191101
  23. SAI GE EN [Concomitant]
     Route: 065
     Dates: start: 20191102
  24. SERPLULIMAB. [Suspect]
     Active Substance: SERPLULIMAB
     Route: 041
     Dates: start: 20191115
  25. SAI GE EN [Concomitant]
     Indication: PROPHYLAXIS
     Route: 065
     Dates: start: 20191024
  26. DIACETYLACETIC ACID ETHYLENEDIAMINE [Concomitant]
     Indication: PRODUCT USED FOR UNKNOWN INDICATION
     Route: 065
     Dates: start: 20191101
  27. ABRAXANE [Suspect]
     Active Substance: PACLITAXEL
     Dosage: ADD INTO THE 250 ML OF SALT WATER
     Route: 041
     Dates: start: 20191101
  28. ABRAXANE [Suspect]
     Active Substance: PACLITAXEL
     Route: 041
     Dates: start: 20191102
  29. ABRAXANE [Suspect]
     Active Substance: PACLITAXEL
     Route: 041
     Dates: start: 20191115
  30. SERPLULIMAB. [Suspect]
     Active Substance: SERPLULIMAB
     Indication: NON-SMALL CELL LUNG CANCER
     Dosage: 261 MILLIGRAM
     Route: 041
     Dates: start: 20191017, end: 20191017
  31. RECOMBINANT HUMAN GRANULOCYTE STIMULATING FACTOR [Concomitant]
     Indication: BONE MARROW FAILURE
     Route: 058
     Dates: start: 20191107, end: 20191107
  32. ABRAXANE [Suspect]
     Active Substance: PACLITAXEL
     Indication: NON-SMALL CELL LUNG CANCER
     Dosage: 100 MILLIGRAM/SQ. METER
     Route: 041
     Dates: start: 20191017, end: 20191017
  33. RECOMBINANT HUMAN GRANULOCYTE STIMULATING FACTOR [Concomitant]
     Route: 058
     Dates: start: 20191030, end: 20191030
  34. SODIUM CHLORIDE. [Concomitant]
     Active Substance: SODIUM CHLORIDE
     Route: 041
     Dates: start: 20191101
  35. SODIUM CHLORIDE. [Concomitant]
     Active Substance: SODIUM CHLORIDE
     Route: 041
     Dates: start: 20191102
  36. WEIDI [Concomitant]
     Indication: PROPHYLAXIS
     Route: 065
     Dates: start: 20191024

REACTIONS (1)
  - Myelosuppression [Recovered/Resolved]

NARRATIVE: CASE EVENT DATE: 20191030
